FAERS Safety Report 6456847-3 (Version None)
Quarter: 2009Q4

REPORT INFORMATION
  Report Type: 
  Country: None (occurrence: None)
  Receive Date: 20091119
  Receipt Date: 20081216
  Transmission Date: 20100525
  Serious: Yes (Hospitalization)
  Sender: FDA-Public Use
  Company Number: 2009AL007236

PATIENT
  Age: 63 Year
  Sex: Female

DRUGS (24)
  1. SULFATRIM PEDIATRIC [Suspect]
     Indication: PNEUMOCYSTIS JIROVECI PNEUMONIA
     Dosage: 2.1 G; TID; IV
     Route: 042
     Dates: start: 20081118, end: 20081201
  2. SULFATRIM AND SULFATRIM PEDIATRIC [Suspect]
     Indication: PNEUMOCYSTIS JIROVECI PNEUMONIA
     Dosage: 1.92 G; QID; PO
     Route: 048
     Dates: start: 20081201, end: 20081202
  3. CITALOPRAM HYDROBROMIDE [Concomitant]
  4. RANITIDINE [Concomitant]
  5. BENDROFLUMETHIAZIDE [Concomitant]
  6. AMLODIPINE [Concomitant]
  7. SIMVASTATIN [Concomitant]
  8. LEFLUNOMIDE [Concomitant]
  9. ACYCLOVIR [Concomitant]
  10. CEFTRIAXONE [Concomitant]
  11. ENOXAPARIN SODIUM [Concomitant]
  12. FOLIC ACID [Concomitant]
  13. LEVOFLOXACIN [Concomitant]
  14. MEROPENEM [Concomitant]
  15. METHOTREXATE [Concomitant]
  16. METHYLPREDNISOLONE [Concomitant]
  17. OMEPRAZOLE [Concomitant]
  18. IPRATROPIUM BROMIDE [Concomitant]
  19. PREDNISOLONE [Concomitant]
  20. VANCOMYCIN [Concomitant]
  21. TEICOPLANIN [Concomitant]
  22. ATOVAQUONE [Concomitant]
  23. INSULIN [Concomitant]
  24. OXYCODONE HCL [Concomitant]

REACTIONS (1)
  - PANCREATIC NECROSIS [None]
